FAERS Safety Report 9257731 (Version 1)
Quarter: 2013Q2

REPORT INFORMATION
  Report Type: Spontaneous
  Country: FR (occurrence: FR)
  Receive Date: 20130426
  Receipt Date: 20130426
  Transmission Date: 20140414
  Serious: Yes (Other)
  Sender: FDA-Public Use
  Company Number: FR-NOVOPROD-376224

PATIENT
  Age: 57 Year
  Sex: Female

DRUGS (9)
  1. VICTOZA [Suspect]
     Indication: TYPE 2 DIABETES MELLITUS
     Route: 058
     Dates: start: 201203, end: 201212
  2. GLUCOPHAGE [Concomitant]
     Indication: TYPE 2 DIABETES MELLITUS
  3. OLMETEC [Concomitant]
     Indication: HYPERTENSION
     Route: 048
  4. LIPANTHYL [Concomitant]
     Indication: HYPERTRIGLYCERIDAEMIA
     Route: 048
     Dates: end: 201209
  5. KARDEGIC [Concomitant]
     Route: 048
  6. METFORMINE [Concomitant]
  7. FUNGIZONE [Concomitant]
  8. TRIFLUCAN [Concomitant]
  9. DAKTARIN                           /00310801/ [Concomitant]

REACTIONS (1)
  - Weight decreased [Recovering/Resolving]
